FAERS Safety Report 4280182-5 (Version None)
Quarter: 2004Q1

REPORT INFORMATION
  Report Type: 
  Country: None (occurrence: None)
  Receive Date: 20040128
  Receipt Date: 20031107
  Transmission Date: 20041129
  Serious: Yes (Hospitalization)
  Sender: FDA-Public Use
  Company Number: JP-GLAXOSMITHKLINE-B0314316A

PATIENT
  Age: 36 Year
  Sex: Female

DRUGS (5)
  1. ZIDOVUDINE [Suspect]
     Indication: HIV INFECTION
     Route: 065
     Dates: start: 20000201, end: 20020401
  2. STAVUDINE [Concomitant]
     Indication: HIV INFECTION
     Route: 065
     Dates: start: 19990301, end: 20000201
  3. LAMIVUDINE [Concomitant]
     Indication: HIV INFECTION
     Route: 065
     Dates: start: 19990301
  4. NELFINAVIR [Concomitant]
     Indication: HIV INFECTION
     Route: 065
     Dates: start: 19990301
  5. ABACAVIR [Concomitant]
     Indication: HIV INFECTION
     Route: 065
     Dates: start: 20021208

REACTIONS (10)
  - BODY TEMPERATURE INCREASED [None]
  - CONGESTIVE CARDIOMYOPATHY [None]
  - COUGH [None]
  - DYSPNOEA [None]
  - HEART RATE INCREASED [None]
  - HEPATIC ENZYME INCREASED [None]
  - HYPOKINESIA [None]
  - MITOCHONDRIAL CYTOPATHY [None]
  - OEDEMA PERIPHERAL [None]
  - SINUS TACHYCARDIA [None]
